FAERS Safety Report 6027589-3 (Version None)
Quarter: 2009Q1

REPORT INFORMATION
  Report Type: 
  Country: None (occurrence: None)
  Receive Date: 20090105
  Receipt Date: 20081027
  Transmission Date: 20090719
  Serious: No
  Sender: FDA-Public Use
  Company Number: US-BAYER-200814242BCC

PATIENT
  Age: 65 Year
  Sex: Female
  Weight: 75 kg

DRUGS (1)
  1. ALEVE [Suspect]
     Indication: ARTHRALGIA
     Dosage: UNIT DOSE: 220 MG
     Route: 048
     Dates: start: 20081020

REACTIONS (4)
  - ABDOMINAL PAIN UPPER [None]
  - ARTHRALGIA [None]
  - HYPERSENSITIVITY [None]
  - URTICARIA [None]
